FAERS Safety Report 4560184-1 (Version None)
Quarter: 2005Q1

REPORT INFORMATION
  Report Type: 
  Country: None (occurrence: None)
  Receive Date: 20050120
  Receipt Date: 20050120
  Transmission Date: 20050727
  Serious: Yes (Other)
  Sender: FDA-Public Use
  Company Number: None

PATIENT
  Age: 69 Year
  Sex: Male
  Weight: 93 kg

DRUGS (2)
  1. REMICADE [Suspect]
     Indication: RHEUMATOID ARTHRITIS
     Dosage: 400 MG EVERY 6 WEEKS IV [12-21-04 LAST INFUSION TOTAL OF 25 TX]
     Route: 042
     Dates: end: 20041221
  2. ARAVA [Concomitant]

REACTIONS (2)
  - LIP NEOPLASM MALIGNANT STAGE UNSPECIFIED [None]
  - SQUAMOUS CELL CARCINOMA [None]
